FAERS Safety Report 22245623 (Version 1)
Quarter: 2023Q2

REPORT INFORMATION
  Report Type: Spontaneous
  Country: US (occurrence: None)
  Receive Date: 20230421
  Receipt Date: 20230421
  Transmission Date: 20230721
  Serious: Yes (Hospitalization)
  Sender: FDA-Public Use
  Company Number: None

PATIENT
  Sex: Female
  Weight: 78.93 kg

DRUGS (15)
  1. CAPECITABINE [Suspect]
     Active Substance: CAPECITABINE
     Indication: Breast cancer female
     Dosage: 300MG 28 DAY CYCLE TWICE DAILY ORAL -DAYS 1-7, 15-21 ?
     Route: 050
  2. CAPECITABINE [Suspect]
     Active Substance: CAPECITABINE
     Indication: Breast cancer female
     Dosage: 2000MG 28 DAY CYCLE TWICE DAILY ORAL -DAYS 1-7, 15-21?
     Route: 050
  3. CALCIUM\VITAMIN D [Concomitant]
     Active Substance: CALCIUM\VITAMIN D
  4. CARVEDILOL [Concomitant]
  5. JARDIANCE [Concomitant]
     Active Substance: EMPAGLIFLOZIN
  6. LAMICTAL [Concomitant]
     Active Substance: LAMOTRIGINE
  7. LASIX [Concomitant]
  8. VITAMINS [Concomitant]
     Active Substance: VITAMINS
  9. PRAVASTATIN [Concomitant]
     Active Substance: PRAVASTATIN
  10. PREGABALIN [Concomitant]
     Active Substance: PREGABALIN
  11. VENLAFAXINE [Concomitant]
     Active Substance: VENLAFAXINE HYDROCHLORIDE
  12. VITAMIN B12 [Concomitant]
     Active Substance: CYANOCOBALAMIN
  13. VITAMIN C [Concomitant]
     Active Substance: ASCORBIC ACID
  14. VITAMIN D3 [Concomitant]
     Active Substance: CHOLECALCIFEROL
  15. ZESTRIL [Concomitant]
     Active Substance: LISINOPRIL

REACTIONS (2)
  - Metastases to spine [None]
  - Therapy interrupted [None]
